FAERS Safety Report 8614974 (Version 5)
Quarter: 2013Q2

REPORT INFORMATION
  Report Type: Report from Study
  Country: DK (occurrence: DK)
  Receive Date: 20120614
  Receipt Date: 20130430
  Transmission Date: 20140414
  Serious: Yes (Other)
  Sender: FDA-Public Use
  Company Number: DK-BAXTER-2012BAX006470

PATIENT
  Age: 45 Year
  Sex: Male
  Weight: 78 kg

DRUGS (17)
  1. SENDOXAN [Suspect]
     Indication: NON-HODGKIN^S LYMPHOMA
     Route: 065
  2. PREDNISOLONE [Suspect]
     Indication: NON-HODGKIN^S LYMPHOMA
     Route: 065
  3. RITUXIMAB [Suspect]
     Indication: NON-HODGKIN^S LYMPHOMA
     Route: 058
     Dates: start: 20110503
  4. RITUXIMAB [Suspect]
     Route: 058
     Dates: start: 20110906
  5. RHUPH20 [Suspect]
     Indication: NON-HODGKIN^S LYMPHOMA
     Route: 058
     Dates: start: 20110503
  6. RHUPH20 [Suspect]
     Route: 058
     Dates: start: 20110906
  7. VINCRISTINE [Suspect]
     Indication: NON-HODGKIN^S LYMPHOMA
     Route: 065
  8. CETIRIZINE [Concomitant]
     Indication: PRODUCT USED FOR UNKNOWN INDICATION
     Route: 065
     Dates: start: 20110503
  9. PARACETAMOL [Concomitant]
     Indication: PRODUCT USED FOR UNKNOWN INDICATION
     Route: 065
     Dates: start: 20110503
  10. ONDANSETRON [Concomitant]
     Indication: PRODUCT USED FOR UNKNOWN INDICATION
     Route: 065
     Dates: start: 20110503
  11. METOCLOPRAMIDE [Concomitant]
     Indication: PRODUCT USED FOR UNKNOWN INDICATION
     Route: 065
     Dates: start: 20110503
  12. ALLOPURINOL [Concomitant]
     Indication: PRODUCT USED FOR UNKNOWN INDICATION
     Route: 065
     Dates: start: 20110503
  13. MONTELUKAST [Concomitant]
     Indication: PRODUCT USED FOR UNKNOWN INDICATION
     Route: 065
     Dates: start: 20110502
  14. FLUCONAZOLE [Concomitant]
     Indication: PRODUCT USED FOR UNKNOWN INDICATION
     Route: 065
     Dates: start: 20110912
  15. LANSOPRAZOLE [Concomitant]
     Indication: DYSPEPSIA
     Route: 065
     Dates: start: 20110912
  16. BALANCID NOVUM [Concomitant]
     Indication: DYSPEPSIA
     Route: 065
     Dates: start: 20110912
  17. UNIKALK [Concomitant]
     Indication: ARTHRALGIA
     Route: 065
     Dates: start: 20110614

REACTIONS (2)
  - Pneumonia mycoplasmal [Recovered/Resolved]
  - Vocal cord paralysis [Recovered/Resolved]
